FAERS Safety Report 15046431 (Version 7)
Quarter: 2019Q1

REPORT INFORMATION
  Report Type: Report from Study
  Country: US (occurrence: US)
  Receive Date: 20180621
  Receipt Date: 20190313
  Transmission Date: 20190417
  Serious: Yes (Hospitalization, Other)
  Sender: FDA-Public Use
  Company Number: US-ACTELION-A-US2018-173858

PATIENT
  Age: 45 Year
  Sex: Female

DRUGS (22)
  1. OPSUMIT [Suspect]
     Active Substance: MACITENTAN
     Indication: PULMONARY ARTERIAL HYPERTENSION
     Dosage: 10 MG, QD
     Route: 048
     Dates: start: 20180525, end: 20181002
  2. LYRICA [Concomitant]
     Active Substance: PREGABALIN
     Dosage: 75 MG, BID
     Dates: start: 2011
  3. OXYGEN. [Concomitant]
     Active Substance: OXYGEN
     Dosage: 8 UNK, UNK
  4. REMODULIN [Concomitant]
     Active Substance: TREPROSTINIL
     Dosage: 60 NG/KG, PER MIN
     Route: 042
     Dates: start: 201601
  5. MERCAPTOPURINE. [Concomitant]
     Active Substance: MERCAPTOPURINE
     Dosage: 50 MG, BID
     Dates: start: 2012, end: 20180601
  6. CELEBREX [Concomitant]
     Active Substance: CELECOXIB
     Dosage: 200 MG, BID
     Dates: start: 2010, end: 20180601
  7. LASIX [Concomitant]
     Active Substance: FUROSEMIDE
     Dosage: 80 MG, BID
     Dates: start: 201601
  8. CLONAZEPAM. [Concomitant]
     Active Substance: CLONAZEPAM
  9. PROZAC [Concomitant]
     Active Substance: FLUOXETINE HYDROCHLORIDE
  10. FLEXERIL [Concomitant]
     Active Substance: CYCLOBENZAPRINE HYDROCHLORIDE
     Dosage: 10 MG, QD
     Dates: start: 2011
  11. HYDROCODONE [Concomitant]
     Active Substance: HYDROCODONE
     Dosage: 1 PILL BID AND 1/2 PILL QD
     Dates: start: 2010
  12. LASIX [Concomitant]
     Active Substance: FUROSEMIDE
     Dosage: 80 MG, TID
     Dates: start: 201512
  13. POTASSIUM CHLORIDE. [Concomitant]
     Active Substance: POTASSIUM CHLORIDE
  14. MIRENA [Concomitant]
     Active Substance: LEVONORGESTREL
     Dosage: UNK
     Dates: start: 201604
  15. OXYGEN. [Concomitant]
     Active Substance: OXYGEN
     Dosage: 3 L, UNK
  16. SILDENAFIL. [Concomitant]
     Active Substance: SILDENAFIL
     Dosage: 10 MG, TID
     Dates: start: 201601
  17. HYDROCODONE BITARTRATE AND ACETAMINOPHEN [Concomitant]
     Active Substance: ACETAMINOPHEN\HYDROCODONE BITARTRATE
  18. PREDNISONE. [Concomitant]
     Active Substance: PREDNISONE
  19. OXYGEN. [Concomitant]
     Active Substance: OXYGEN
     Dosage: 15 L, UNK
  20. MERCAPTOPURINE. [Concomitant]
     Active Substance: MERCAPTOPURINE
     Dosage: 50 MG, BID
     Dates: start: 20180610
  21. WARFARIN [Concomitant]
     Active Substance: WARFARIN
     Dosage: UNK
     Dates: end: 20181009
  22. 6-MERCAPTOPURINE MONOHYDRATE [Concomitant]
     Active Substance: MERCAPTOPURINE

REACTIONS (16)
  - Pneumonia parainfluenzae viral [Recovered/Resolved]
  - Anaemia [Recovered/Resolved]
  - Pancytopenia [Not Recovered/Not Resolved]
  - Pulmonary congestion [Recovered/Resolved]
  - Bone marrow disorder [Unknown]
  - Headache [Recovered/Resolved]
  - Dyspnoea exertional [Recovered/Resolved]
  - Presyncope [Unknown]
  - Oxygen saturation decreased [Recovered/Resolved]
  - Pyrexia [Recovered/Resolved]
  - Transfusion [Unknown]
  - Blood bilirubin increased [Recovered/Resolved]
  - Parainfluenzae virus infection [Recovered/Resolved]
  - Haemoglobin decreased [Recovering/Resolving]
  - White blood cell count decreased [Recovering/Resolving]
  - Red blood cell abnormality [Unknown]

NARRATIVE: CASE EVENT DATE: 2018
